FAERS Safety Report 4391248-3 (Version None)
Quarter: 2004Q2

REPORT INFORMATION
  Report Type: 
  Country: None (occurrence: None)
  Receive Date: 20040621
  Receipt Date: 20031120
  Transmission Date: 20050107
  Serious: Yes (Death, Other)
  Sender: FDA-Public Use
  Company Number: USA-2002-0003652

PATIENT
  Age: 25 Year
  Sex: Male

DRUGS (4)
  1. OXYCONTIN [Suspect]
  2. XANAX [Suspect]
     Dosage: ORAL
     Route: 048
  3. LORCET-HD [Suspect]
     Dosage: ORAL
     Route: 048
  4. PERCOCET [Suspect]
     Dosage: ORAL
     Route: 048

REACTIONS (2)
  - DRUG ABUSER [None]
  - OVERDOSE [None]
